FAERS Safety Report 18068792 (Version 2)
Quarter: 2020Q4

REPORT INFORMATION
  Report Type: Spontaneous
  Country: GB (occurrence: GB)
  Receive Date: 20200724
  Receipt Date: 20201124
  Transmission Date: 20210113
  Serious: Yes (Hospitalization, Other)
  Sender: FDA-Public Use
  Company Number: GB-JAZZ-2020-GB-009062

PATIENT
  Age: 74 Year
  Sex: Female

DRUGS (2)
  1. VYXEOS [Suspect]
     Active Substance: CYTARABINE\DAUNORUBICIN
     Indication: ACUTE MYELOID LEUKAEMIA
     Dosage: INDUCTION 1 REGIME FULL DOSE
     Route: 065
     Dates: start: 20190419, end: 20190423
  2. VYXEOS [Suspect]
     Active Substance: CYTARABINE\DAUNORUBICIN
     Dosage: CONSOLIDATION CYCLE 1
     Dates: start: 201906, end: 20190816

REACTIONS (5)
  - Diverticulitis [Recovering/Resolving]
  - Pseudomonal sepsis [Recovering/Resolving]
  - Intestinal obstruction [Unknown]
  - Diverticular perforation [Unknown]
  - Neutrophil count decreased [Recovered/Resolved]

NARRATIVE: CASE EVENT DATE: 2019
